FAERS Safety Report 8727962 (Version 3)
Quarter: 2012Q4

REPORT INFORMATION
  Report Type: 
  Country: US (occurrence: US)
  Receive Date: 20120816
  Receipt Date: 20120830
  Transmission Date: 20130627
  Serious: Yes (Other)
  Sender: FDA-Public Use
  Company Number: CHPA2012US017727

PATIENT
  Age: 78 Year
  Sex: Female

DRUGS (4)
  1. EXCEDRIN EXTRA STRENGTH [Suspect]
     Indication: HEADACHE
     Dosage: 3 DF, PRN
     Route: 048
     Dates: start: 1965
  2. EXCEDRIN EXTRA STRENGTH [Suspect]
     Dosage: 2 DF, Unk
     Route: 048
     Dates: start: 1965
  3. KADIAN [Suspect]
     Indication: SPINAL COLUMN INJURY
     Dosage: 100 mg, Unk
  4. ASPIRIN ^BAYER^ [Concomitant]
     Dosage: Unk, Unk

REACTIONS (10)
  - Spinal column injury [Not Recovered/Not Resolved]
  - Intervertebral disc injury [Not Recovered/Not Resolved]
  - Pain [Not Recovered/Not Resolved]
  - Heart rate irregular [Unknown]
  - Fall [Recovered/Resolved]
  - Feeling abnormal [Recovered/Resolved]
  - Insomnia [Unknown]
  - Drug ineffective [Unknown]
  - Incorrect dose administered [Unknown]
  - Product quality issue [None]
